FAERS Safety Report 7353707-0 (Version None)
Quarter: 2011Q1

REPORT INFORMATION
  Report Type: 
  Country: None (occurrence: None)
  Receive Date: 20110303
  Receipt Date: 20101019
  Transmission Date: 20110831
  Serious: Yes (Other)
  Sender: FDA-Public Use
  Company Number: WAES 1010USA02206

PATIENT
  Age: 49 Year
  Sex: Female

DRUGS (2)
  1. PRINIVIL [Suspect]
     Indication: PRODUCT USED FOR UNKNOWN INDICATION
     Dosage: 20 MG/DAILY/PO
     Route: 048
  2. ONGLYZA [Suspect]
     Indication: PRODUCT USED FOR UNKNOWN INDICATION
     Dosage: 5 MG/DAILY/PO
     Route: 048
     Dates: start: 20100201

REACTIONS (3)
  - URTICARIA [None]
  - EYE SWELLING [None]
  - SWELLING FACE [None]
